FAERS Safety Report 5703166-6 (Version None)
Quarter: 2008Q2

REPORT INFORMATION
  Report Type: 
  Country: None (occurrence: None)
  Receive Date: 20080411
  Receipt Date: 20080311
  Transmission Date: 20081010
  Serious: No
  Sender: FDA-Public Use
  Company Number: US-BAYER-200817102NA

PATIENT
  Age: 51 Year
  Sex: Female

DRUGS (3)
  1. ANGELIQ [Suspect]
     Indication: HOT FLUSH
     Route: 048
     Dates: start: 20080308
  2. LEVOTHYROXINE SODIUM [Concomitant]
     Indication: THYROXINE DECREASED
  3. CLARINEX [Concomitant]

REACTIONS (2)
  - HOT FLUSH [None]
  - TREMOR [None]
